FAERS Safety Report 4367059-1 (Version None)
Quarter: 2004Q2

REPORT INFORMATION
  Report Type: 
  Country: None (occurrence: None)
  Receive Date: 20040528
  Receipt Date: 20040525
  Transmission Date: 20050107
  Serious: Yes (Hospitalization, Other)
  Sender: FDA-Public Use
  Company Number: US-JNJFOC-20040506075

PATIENT
  Sex: Female
  Weight: 62.14 kg

DRUGS (4)
  1. TOPAMAX [Suspect]
     Route: 049
  2. TOPAMAX [Suspect]
     Route: 049
  3. SEROQUEL [Concomitant]
  4. REMERON [Concomitant]

REACTIONS (9)
  - ANXIETY [None]
  - ARTERITIS [None]
  - BLINDNESS [None]
  - COGNITIVE DISORDER [None]
  - DEMENTIA [None]
  - PAPILLOEDEMA [None]
  - POLYARTERITIS NODOSA [None]
  - PSYCHOTIC DISORDER [None]
  - VISUAL ACUITY REDUCED [None]
